FAERS Safety Report 8174849-6 (Version None)
Quarter: 2012Q1

REPORT INFORMATION
  Report Type: 
  Country: None (occurrence: None)
  Receive Date: 20120229
  Receipt Date: 20110202
  Transmission Date: 20120608
  Serious: No
  Sender: FDA-Public Use
  Company Number: US-GLAXOSMITHKLINE-A0911439A

PATIENT
  Age: 81 Year
  Sex: Female

DRUGS (5)
  1. VALTREX [Suspect]
     Indication: HERPES ZOSTER
     Dosage: 500MG SINGLE DOSE
     Route: 048
     Dates: start: 20110201, end: 20110201
  2. ZYRTEC [Concomitant]
  3. ASPIRIN [Concomitant]
  4. ZOCOR [Concomitant]
  5. BLOOD PRESSURE MEDICATION [Concomitant]

REACTIONS (4)
  - DYSPNOEA [None]
  - ANXIETY [None]
  - PALPITATIONS [None]
  - DIARRHOEA [None]
